FAERS Safety Report 25467173 (Version 2)
Quarter: 2025Q4

REPORT INFORMATION
  Report Type: Report from Study
  Country: US (occurrence: None)
  Receive Date: 20250623
  Receipt Date: 20251014
  Transmission Date: 20260117
  Serious: Yes (Other)
  Sender: UCB
  Company Number: US-UCBSA-2025034773

PATIENT
  Age: 22 Year

DRUGS (4)
  1. FENFLURAMINE [Suspect]
     Active Substance: FENFLURAMINE
     Indication: Lennox-Gastaut syndrome
     Dosage: 5.9 MILLILITER, 2X/DAY (BID)
  2. FENFLURAMINE [Suspect]
     Active Substance: FENFLURAMINE
     Dosage: 2.2 MILLILITER, 2X/DAY (BID)
  3. FENFLURAMINE [Suspect]
     Active Substance: FENFLURAMINE
     Dosage: UNK
  4. FENFLURAMINE [Suspect]
     Active Substance: FENFLURAMINE
     Dosage: 0.1 MG/KG/DAY TO A TOTAL OF 0.48 MG/DAY

REACTIONS (4)
  - Generalised tonic-clonic seizure [Not Recovered/Not Resolved]
  - Behaviour disorder [Not Recovered/Not Resolved]
  - Aggression [Not Recovered/Not Resolved]
  - Product dose omission issue [Unknown]
